FAERS Safety Report 14602363 (Version 2)
Quarter: 2018Q1

REPORT INFORMATION
  Report Type: Report from Study
  Country: US (occurrence: US)
  Receive Date: 20180306
  Receipt Date: 20180313
  Transmission Date: 20180509
  Serious: Yes (Hospitalization)
  Sender: FDA-Public Use
  Company Number: US-ROCHE-2046753

PATIENT
  Age: 57 Year
  Sex: Male
  Weight: 85 kg

DRUGS (57)
  1. OCRELIZUMAB. [Suspect]
     Active Substance: OCRELIZUMAB
     Indication: PRIMARY PROGRESSIVE MULTIPLE SCLEROSIS
     Dosage: SUBSEQUENT DOSES OF OPEN LABEL OCRELIZUMAB ON 01/APR/2016, 07/SEP/2016,  27/SEP/2016, 16/FEB/2017, 1
     Route: 042
     Dates: start: 20160321
  2. BACLOFEN. [Concomitant]
     Active Substance: BACLOFEN
     Indication: MUSCLE SPASTICITY
     Route: 065
     Dates: start: 20060101, end: 20130125
  3. GARLIC. [Concomitant]
     Active Substance: GARLIC
     Route: 065
     Dates: start: 20170307
  4. METAMUCIL [Concomitant]
     Active Substance: PLANTAGO SEED
     Indication: CONSTIPATION
     Dosage: DOSE: 1 PKT
     Route: 065
     Dates: start: 20140828
  5. POTASSIUM CHLORIDE. [Concomitant]
     Active Substance: POTASSIUM CHLORIDE
     Route: 065
     Dates: start: 20170417, end: 20170816
  6. XANAX [Concomitant]
     Active Substance: ALPRAZOLAM
     Route: 065
     Dates: start: 20140121
  7. SULFAMYLON [Concomitant]
     Active Substance: MAFENIDE ACETATE
     Indication: CELLULITIS
     Dosage: 85 MG/G, 1 APPLICATION
     Route: 065
     Dates: start: 20170307, end: 20170315
  8. ACETAMINOPHEN. [Concomitant]
     Active Substance: ACETAMINOPHEN
     Route: 065
     Dates: start: 20150731, end: 20150804
  9. ALPRAZOLAM. [Concomitant]
     Active Substance: ALPRAZOLAM
     Indication: ANXIETY
     Route: 065
     Dates: start: 20150415
  10. BACLOFEN. [Concomitant]
     Active Substance: BACLOFEN
     Route: 065
     Dates: start: 20150115
  11. BACLOFEN. [Concomitant]
     Active Substance: BACLOFEN
     Route: 065
     Dates: start: 20140818, end: 20150114
  12. BACLOFEN. [Concomitant]
     Active Substance: BACLOFEN
     Route: 065
     Dates: start: 20140527, end: 20140816
  13. DOXYCYCLINE. [Concomitant]
     Active Substance: DOXYCYCLINE
     Indication: CELLULITIS
     Route: 065
     Dates: start: 20171123, end: 20171202
  14. METAMUCIL [Concomitant]
     Active Substance: PLANTAGO SEED
     Indication: HYPOMAGNESAEMIA
     Dosage: DOSE: 1 PKT
     Route: 065
     Dates: start: 20140824, end: 20140827
  15. XANAX [Concomitant]
     Active Substance: ALPRAZOLAM
     Route: 065
     Dates: start: 20131210, end: 20131210
  16. ROBITUSSIN AC (UNITED STATES) [Concomitant]
     Indication: COUGH
     Route: 065
  17. FLOMAX [Concomitant]
     Active Substance: TAMSULOSIN HYDROCHLORIDE
     Indication: NEUROGENIC BLADDER
     Route: 065
     Dates: start: 20060101, end: 20140816
  18. POTASSIUM CHLORIDE. [Concomitant]
     Active Substance: POTASSIUM CHLORIDE
     Indication: HYPOKALAEMIA
     Route: 065
     Dates: start: 20170309, end: 20170315
  19. POTASSIUM CHLORIDE. [Concomitant]
     Active Substance: POTASSIUM CHLORIDE
     Route: 065
     Dates: start: 20140818, end: 20140818
  20. SWEEN CREAM [Concomitant]
     Indication: CELLULITIS
     Dosage: 1 APPLICATION
     Route: 065
     Dates: start: 20171110
  21. AMBIEN [Concomitant]
     Active Substance: ZOLPIDEM TARTRATE
     Route: 065
     Dates: start: 20171106, end: 20171221
  22. BENADRYL [Concomitant]
     Active Substance: DIPHENHYDRAMINE HYDROCHLORIDE
     Indication: CELLULITIS
  23. ACETAMINOPHEN. [Concomitant]
     Active Substance: ACETAMINOPHEN
     Route: 048
     Dates: start: 20131125
  24. BACLOFEN. [Concomitant]
     Active Substance: BACLOFEN
     Route: 065
     Dates: start: 20140817, end: 20140817
  25. CITALOPRAM [Concomitant]
     Active Substance: CITALOPRAM HYDROBROMIDE
     Indication: DEPRESSION
     Route: 065
     Dates: start: 20170417
  26. METAMUCIL [Concomitant]
     Active Substance: PLANTAGO SEED
     Dosage: DOSE: 1 PKT
     Route: 065
     Dates: start: 20130129, end: 20130212
  27. VALIUM [Concomitant]
     Active Substance: DIAZEPAM
     Route: 065
     Dates: start: 20150422
  28. TAMIFLU [Concomitant]
     Active Substance: OSELTAMIVIR PHOSPHATE
     Route: 065
     Dates: start: 20171218
  29. BENADRYL [Concomitant]
     Active Substance: DIPHENHYDRAMINE HYDROCHLORIDE
     Indication: STASIS DERMATITIS
     Route: 065
     Dates: start: 20171123, end: 20171201
  30. OCRELIZUMAB. [Suspect]
     Active Substance: OCRELIZUMAB
     Indication: PRIMARY PROGRESSIVE MULTIPLE SCLEROSIS
     Dosage: SUBSEQUENT DOSES OF BLINDED OCRELIZUMAB RECEIVED ON 10/JAN/2013, 21/JUN/2013,  09/JUL/2013, 25/NOV/2
     Route: 042
     Dates: start: 20121227, end: 20160328
  31. DIPHENHYDRAMINE. [Concomitant]
     Active Substance: DIPHENHYDRAMINE
     Dosage: SAME DOSE ON 10/JAN/2013, 21/JUN/2013, 09/JUL/2013, 10/DEC/2013, 25/NOV/2013,13/MAY/2014, 27/MAY/20
     Route: 065
     Dates: start: 20121227
  32. DOXYCYCLINE. [Concomitant]
     Active Substance: DOXYCYCLINE
     Route: 065
     Dates: start: 20171208, end: 20171218
  33. LASIX [Concomitant]
     Active Substance: FUROSEMIDE
     Route: 065
     Dates: start: 20170420, end: 20170426
  34. POTASSIUM CHLORIDE. [Concomitant]
     Active Substance: POTASSIUM CHLORIDE
     Route: 065
     Dates: start: 20170316, end: 20170416
  35. CEPACOL (UNITED STATES) [Concomitant]
     Indication: OROPHARYNGEAL PAIN
  36. BENADRYL [Concomitant]
     Active Substance: DIPHENHYDRAMINE HYDROCHLORIDE
     Indication: HYPERSENSITIVITY
     Route: 065
     Dates: start: 20171202, end: 20180111
  37. BACLOFEN. [Concomitant]
     Active Substance: BACLOFEN
     Route: 065
     Dates: start: 20130126, end: 20140526
  38. VALIUM [Concomitant]
     Active Substance: DIAZEPAM
     Indication: ANXIETY
     Route: 065
     Dates: start: 20121212, end: 20121212
  39. VITAMIN C [Concomitant]
     Active Substance: ASCORBIC ACID
     Route: 065
     Dates: start: 20130101, end: 20140816
  40. XARELTO [Concomitant]
     Active Substance: RIVAROXABAN
     Indication: DEEP VEIN THROMBOSIS
     Route: 065
     Dates: start: 20171123
  41. DUONEB [Concomitant]
     Active Substance: ALBUTEROL SULFATE\IPRATROPIUM BROMIDE
     Indication: WHEEZING
  42. LIORESAL [Concomitant]
     Active Substance: BACLOFEN
     Route: 048
  43. SULFAMYLON [Concomitant]
     Active Substance: MAFENIDE ACETATE
     Indication: CELLULITIS
     Dosage: 2 APPLICATION
     Route: 065
     Dates: start: 20171127, end: 20180104
  44. METHYLPREDNISOLONE. [Concomitant]
     Active Substance: METHYLPREDNISOLONE
     Dosage: SAME DOSE ON 10/JAN/2013, 21/JUN/2013 09/JUL/2013, 25/NOV/2013,10/DEC/2013,  13/MAY/2014, 27/MAY/201
     Route: 065
     Dates: start: 20121227
  45. AQUAPHOR HEALING OITMENT [Concomitant]
     Indication: OEDEMA PERIPHERAL
     Dosage: DOSE: 1 OTHER
     Route: 065
     Dates: start: 20170309
  46. DOXYCYCLINE. [Concomitant]
     Active Substance: DOXYCYCLINE
     Indication: CELLULITIS
     Route: 065
     Dates: start: 20171109, end: 20171123
  47. LASIX [Concomitant]
     Active Substance: FUROSEMIDE
     Route: 065
     Dates: start: 20170427, end: 20170816
  48. VALIUM [Concomitant]
     Active Substance: DIAZEPAM
     Route: 065
     Dates: start: 20131028, end: 20131028
  49. ACETAMINOPHEN. [Concomitant]
     Active Substance: ACETAMINOPHEN
     Indication: UPPER RESPIRATORY TRACT INFECTION
     Dosage: SAME DOSE ON 10/JAN/2013, 21/JUN/2013 09/JUL/2013, 10/DEC/2013,  13/MAY/2014, 27/MAY/2014,12/NOV/201
     Route: 065
     Dates: start: 20121227
  50. FLOMAX [Concomitant]
     Active Substance: TAMSULOSIN HYDROCHLORIDE
     Indication: BENIGN PROSTATIC HYPERPLASIA
     Route: 065
     Dates: start: 20140818
  51. LASIX [Concomitant]
     Active Substance: FUROSEMIDE
     Indication: OEDEMA PERIPHERAL
     Route: 065
     Dates: start: 20170911
  52. POTASSIUM CHLORIDE. [Concomitant]
     Active Substance: POTASSIUM CHLORIDE
     Route: 065
     Dates: start: 20170911
  53. VITAMIN C [Concomitant]
     Active Substance: ASCORBIC ACID
     Route: 065
     Dates: start: 20140817
  54. VITAMIN D3 [Concomitant]
     Active Substance: CHOLECALCIFEROL
     Route: 065
     Dates: start: 19980101, end: 20140816
  55. VITAMIN D3 [Concomitant]
     Active Substance: CHOLECALCIFEROL
     Route: 065
     Dates: start: 20170307
  56. MONODOX (UNITED STATES) [Concomitant]
  57. KETOCONAZOLE. [Concomitant]
     Active Substance: KETOCONAZOLE
     Indication: SEBORRHOEIC DERMATITIS
     Dosage: 1 APPLICATION
     Route: 065
     Dates: start: 20171202, end: 20171217

REACTIONS (1)
  - Pneumonia [Recovered/Resolved]

NARRATIVE: CASE EVENT DATE: 20171218
